FAERS Safety Report 7001262-7 (Version None)
Quarter: 2010Q3

REPORT INFORMATION
  Report Type: 
  Country: None (occurrence: None)
  Receive Date: 20100920
  Receipt Date: 20100910
  Transmission Date: 20110219
  Serious: Yes (Hospitalization)
  Sender: FDA-Public Use
  Company Number: JP-ROCHE-726941

PATIENT
  Sex: Female
  Weight: 35 kg

DRUGS (18)
  1. ACTEMRA [Suspect]
     Indication: RHEUMATOID ARTHRITIS
     Route: 041
     Dates: start: 20090826, end: 20090826
  2. ACTEMRA [Suspect]
     Route: 041
     Dates: start: 20090930, end: 20090930
  3. ACTEMRA [Suspect]
     Route: 041
     Dates: start: 20091028, end: 20091028
  4. ACTEMRA [Suspect]
     Route: 041
     Dates: start: 20091125, end: 20091125
  5. ACTEMRA [Suspect]
     Route: 041
     Dates: start: 20091224, end: 20091224
  6. ACTEMRA [Suspect]
     Route: 041
     Dates: start: 20100120, end: 20100120
  7. ACTEMRA [Suspect]
     Route: 041
     Dates: start: 20100216
  8. RHEUMATREX [Suspect]
     Indication: RHEUMATOID ARTHRITIS
     Route: 048
     Dates: start: 20100216
  9. PREDNISOLONE [Concomitant]
     Dosage: FORM: PERORAL AGENT
     Route: 048
  10. OMEPRAL [Concomitant]
     Dosage: FORM: ENTERIC COATING DRUG
     Route: 048
  11. OLMETEC [Concomitant]
     Route: 048
  12. LIPITOR [Concomitant]
     Route: 048
  13. BASEN [Concomitant]
     Route: 048
  14. BAKTAR [Concomitant]
     Route: 048
  15. ALOSITOL [Concomitant]
     Route: 048
  16. VOLTAREN [Concomitant]
     Dosage: SUSTAINED RELEASE CAPSULE
     Route: 048
  17. CYTOTEC [Concomitant]
     Route: 048
  18. ACTONEL [Concomitant]
     Route: 048

REACTIONS (1)
  - LARGE INTESTINE PERFORATION [None]
